FAERS Safety Report 10100818 (Version 2)
Quarter: 2014Q2

REPORT INFORMATION
  Report Type: Spontaneous
  Country: US (occurrence: US)
  Receive Date: 20140423
  Receipt Date: 20140513
  Transmission Date: 20141212
  Serious: No
  Sender: FDA-Public Use
  Company Number: US-009507513-1404USA001427

PATIENT
  Age: 90 Year
  Sex: Female
  Weight: 49.89 kg

DRUGS (1)
  1. OXYTROL FOR WOMEN [Suspect]
     Indication: HYPERTONIC BLADDER
     Dosage: UNK, UNKNOWN
     Route: 062
     Dates: start: 20140310, end: 20140330

REACTIONS (2)
  - Drug administered at inappropriate site [Unknown]
  - Drug ineffective [Unknown]
